FAERS Safety Report 16918748 (Version 2)
Quarter: 2020Q1

REPORT INFORMATION
  Report Type: Spontaneous
  Country: US (occurrence: US)
  Receive Date: 20191015
  Receipt Date: 20200114
  Transmission Date: 20200409
  Serious: Yes (Other)
  Sender: FDA-Public Use
  Company Number: US-009507513-1910USA009042

PATIENT
  Age: 93 Year
  Sex: Female

DRUGS (1)
  1. KEYTRUDA [Suspect]
     Active Substance: PEMBROLIZUMAB
     Indication: NON-SMALL CELL LUNG CANCER
     Dosage: UNK,  MONOTHERAPY
     Route: 042
     Dates: start: 2018

REACTIONS (1)
  - Clostridium difficile infection [Unknown]

NARRATIVE: CASE EVENT DATE: 201910
